FAERS Safety Report 24567388 (Version 1)
Quarter: 2024Q4

REPORT INFORMATION
  Report Type: Spontaneous
  Country: CN (occurrence: None)
  Receive Date: 20241030
  Receipt Date: 20241030
  Transmission Date: 20250114
  Serious: Yes (Hospitalization, Other)
  Sender: ALEXION PHARMACEUTICALS
  Company Number: CN-ASTRAZENECA-202410CHN019208CN

PATIENT
  Age: 53 Year

DRUGS (1)
  1. LYNPARZA [Suspect]
     Active Substance: OLAPARIB
     Indication: Neoplasm
     Dosage: 30 MILLIGRAM, BID

REACTIONS (1)
  - Myelosuppression [Recovering/Resolving]
